FAERS Safety Report 7626714-8 (Version None)
Quarter: 2011Q3

REPORT INFORMATION
  Report Type: 
  Country: None (occurrence: None)
  Receive Date: 20110721
  Receipt Date: 20110706
  Transmission Date: 20111222
  Serious: Yes (Hospitalization, Other)
  Sender: FDA-Public Use
  Company Number: JP-ROCHE-790653

PATIENT
  Age: 68 Year
  Sex: Female

DRUGS (4)
  1. HERCEPTIN [Suspect]
     Indication: BREAST CANCER METASTATIC
     Dosage: DOSAGE IS UNCERTAIN.
     Route: 041
  2. PACLITAXEL [Concomitant]
     Dosage: DOSAGE IS UNCERTAIN.
     Route: 041
  3. LAPATINIB TOSILATE [Concomitant]
     Dosage: DOSAGE IS UNCERTAIN.
     Route: 048
  4. XELODA [Suspect]
     Indication: BREAST CANCER METASTATIC
     Dosage: DOSAGE IS UNCERTAIN.
     Route: 048

REACTIONS (11)
  - URETERIC STENOSIS [None]
  - BACK PAIN [None]
  - ABDOMINAL PAIN [None]
  - METASTASES TO PERITONEUM [None]
  - HYDRONEPHROSIS [None]
  - DEHYDRATION [None]
  - NAUSEA [None]
  - DUODENAL STENOSIS [None]
  - VOMITING [None]
  - DIARRHOEA [None]
  - RENAL IMPAIRMENT [None]
